FAERS Safety Report 5722426-6 (Version None)
Quarter: 2008Q2

REPORT INFORMATION
  Report Type: 
  Country: None (occurrence: None)
  Receive Date: 20080429
  Receipt Date: 20071114
  Transmission Date: 20081010
  Serious: No
  Sender: FDA-Public Use
  Company Number: US-ASTRAZENECA-2007UW26290

PATIENT
  Age: 73 Year
  Sex: Female
  Weight: 69 kg

DRUGS (2)
  1. NEXIUM [Suspect]
     Indication: GASTROOESOPHAGEAL REFLUX DISEASE
     Route: 048
     Dates: start: 20071113
  2. VITAMINS [Concomitant]

REACTIONS (3)
  - FEELING COLD [None]
  - MALAISE [None]
  - VOMITING [None]
